FAERS Safety Report 10708848 (Version 2)
Quarter: 2015Q3

REPORT INFORMATION
  Report Type: Spontaneous
  Country: GB (occurrence: GB)
  Receive Date: 20150113
  Receipt Date: 20150924
  Transmission Date: 20151125
  Serious: Yes (Disabling, Other)
  Sender: FDA-Public Use
  Company Number: PHHY2015GB001801

PATIENT

DRUGS (3)
  1. SIMVASTATIN. [Suspect]
     Active Substance: SIMVASTATIN
     Route: 048
     Dates: start: 201110
  2. ALLOPURINOL. [Concomitant]
     Active Substance: ALLOPURINOL
     Indication: GOUT
     Dosage: 100 MG, QD
     Route: 048
     Dates: start: 2007
  3. SIMVASTATIN. [Suspect]
     Active Substance: SIMVASTATIN
     Indication: HYPERLIPIDAEMIA
     Dosage: 40 MG, QD
     Route: 048
     Dates: start: 2011

REACTIONS (2)
  - Deep vein thrombosis [Recovering/Resolving]
  - Tendon rupture [Recovering/Resolving]

NARRATIVE: CASE EVENT DATE: 201403
